FAERS Safety Report 12760399 (Version 1)
Quarter: 2016Q3

REPORT INFORMATION
  Report Type: Spontaneous
  Country: US (occurrence: US)
  Receive Date: 20160919
  Receipt Date: 20160919
  Transmission Date: 20161109
  Serious: Yes (Hospitalization, Disabling, Other)
  Sender: FDA-Public Use
  Company Number: US-009507513-1112USA03023

PATIENT
  Sex: Female
  Weight: 87.54 kg

DRUGS (5)
  1. FOSAMAX [Suspect]
     Active Substance: ALENDRONATE SODIUM
     Indication: OSTEOPOROSIS
     Dosage: 70 MG, UNK
     Route: 048
     Dates: start: 200006, end: 20060226
  2. FOSAMAX [Suspect]
     Active Substance: ALENDRONATE SODIUM
     Indication: OSTEOPOROSIS PROPHYLAXIS
     Dosage: 80 MG, QW
     Route: 048
  3. BONIVA [Suspect]
     Active Substance: IBANDRONATE SODIUM
     Indication: OSTEOPOROSIS PROPHYLAXIS
  4. CENTRUM SILVER [Concomitant]
     Active Substance: MINERALS\VITAMINS
     Indication: PRODUCT USED FOR UNKNOWN INDICATION
     Dosage: UNK, QD
     Route: 048
  5. BONIVA [Suspect]
     Active Substance: IBANDRONATE SODIUM
     Indication: OSTEOPOROSIS
     Dosage: 150 MG, QM
     Route: 065
     Dates: start: 20060331

REACTIONS (76)
  - Fall [Unknown]
  - Hypertension [Unknown]
  - Headache [Unknown]
  - Pain in extremity [Unknown]
  - Fracture delayed union [Unknown]
  - Gout [Unknown]
  - Humerus fracture [Unknown]
  - Spinal osteoarthritis [Unknown]
  - Staphylococcal infection [Unknown]
  - Blood cholesterol increased [Unknown]
  - Body mass index increased [Unknown]
  - Rib fracture [Recovering/Resolving]
  - Rib fracture [Unknown]
  - Kidney infection [Unknown]
  - Abdominal discomfort [Unknown]
  - Asthenia [Unknown]
  - Angiopathy [Unknown]
  - Urinary tract infection [Unknown]
  - Rib fracture [Recovered/Resolved]
  - Atelectasis [Unknown]
  - Eustachian tube dysfunction [Unknown]
  - Neck pain [Unknown]
  - Hypoglycaemia [Unknown]
  - Fall [Unknown]
  - Back pain [Unknown]
  - Cellulitis [Unknown]
  - Neuropathy peripheral [Unknown]
  - Vertigo [Unknown]
  - Hypokalaemia [Recovering/Resolving]
  - Diarrhoea [Unknown]
  - Hypoaesthesia [Unknown]
  - Hiatus hernia [Unknown]
  - Gastrooesophageal reflux disease [Unknown]
  - Cerebellar atrophy [Unknown]
  - Renal atrophy [Unknown]
  - Arteriosclerosis [Unknown]
  - Blood albumin decreased [Unknown]
  - Serum sickness [Unknown]
  - Rib fracture [Recovering/Resolving]
  - Pyrexia [Unknown]
  - Anxiety [Unknown]
  - Back pain [Unknown]
  - Rib deformity [Unknown]
  - Fall [Recovering/Resolving]
  - Cataract [Unknown]
  - Upper limb fracture [Unknown]
  - Renal artery stenosis [Unknown]
  - Low turnover osteopathy [Not Recovered/Not Resolved]
  - Blood disorder [Unknown]
  - Transient ischaemic attack [Recovered/Resolved]
  - Paraesthesia [Unknown]
  - Anaemia [Unknown]
  - Skin cancer [Unknown]
  - Clavicle fracture [Unknown]
  - Tachycardia [Unknown]
  - Hypersensitivity [Unknown]
  - Gait disturbance [Unknown]
  - Inappropriate schedule of drug administration [Unknown]
  - Neuromyopathy [Unknown]
  - Blood sodium decreased [Unknown]
  - Sepsis [Unknown]
  - Pneumonia [Unknown]
  - Femur fracture [Not Recovered/Not Resolved]
  - Hypothyroidism [Unknown]
  - Lung disorder [Unknown]
  - Chest injury [Unknown]
  - Pleural fibrosis [Unknown]
  - Respiratory disorder [Unknown]
  - Tachycardia [Unknown]
  - Implant site reaction [Unknown]
  - Constipation [Unknown]
  - Rhinitis allergic [Unknown]
  - Atelectasis [Unknown]
  - Chest discomfort [Unknown]
  - Contusion [Unknown]
  - Decreased appetite [Unknown]

NARRATIVE: CASE EVENT DATE: 20000720
